FAERS Safety Report 11228534 (Version 1)
Quarter: 2015Q2

REPORT INFORMATION
  Report Type: Other
  Country: US (occurrence: US)
  Receive Date: 20150630
  Receipt Date: 20150630
  Transmission Date: 20150821
  Serious: Yes (Hospitalization)
  Sender: FDA-Public Use
  Company Number: US-SHIRE-US201506598

PATIENT
  Age: 44 Year
  Sex: Female
  Weight: 102.4 kg

DRUGS (15)
  1. CINRYZE [Suspect]
     Active Substance: HUMAN C1-ESTERASE INHIBITOR
     Indication: PROPHYLAXIS
  2. STERILE WATER [Concomitant]
     Active Substance: WATER
     Indication: MEDICATION DILUTION
     Dosage: 5 ML, OTHER, AS DIRECTED
     Route: 042
     Dates: start: 20130212
  3. EPIPEN [Concomitant]
     Active Substance: EPINEPHRINE
     Indication: ANAPHYLACTIC REACTION
     Dosage: 0.3 MG, OTHER, AS DIRECTED
     Route: 030
     Dates: start: 20130212
  4. EPIPEN [Concomitant]
     Active Substance: EPINEPHRINE
     Dosage: 1 DF, UNK, 1 DOSE AS DIRECTED
     Route: 030
  5. HEPARIN [Concomitant]
     Active Substance: HEPARIN SODIUM
     Indication: CATHETER MANAGEMENT
     Dosage: 1 DF, OTHER, 1 DOSE AS DIRECTED, 100 UNITS/ML
     Route: 042
     Dates: start: 20130212
  6. LOVENOX [Concomitant]
     Active Substance: ENOXAPARIN SODIUM
     Indication: PRODUCT USED FOR UNKNOWN INDICATION
     Dosage: 1 DF, OTHER, 1 DOSE AS DIRECTED
     Route: 065
     Dates: start: 20130110
  7. WARFARIN SODIUM. [Concomitant]
     Active Substance: WARFARIN SODIUM
     Indication: PRODUCT USED FOR UNKNOWN INDICATION
     Dosage: 9 MG, 1X/DAY:QD
     Route: 048
     Dates: start: 20131022
  8. COUMADIN [Concomitant]
     Active Substance: WARFARIN SODIUM
     Indication: PRODUCT USED FOR UNKNOWN INDICATION
     Dosage: 1 DF, OTHER, 1 DOSE AS DIRECTED
     Route: 065
     Dates: start: 20130110
  9. FIRAZYR [Suspect]
     Active Substance: ICATIBANT ACETATE
     Indication: HEREDITARY ANGIOEDEMA
     Dosage: 30 MG, OTHER, AS DIRECTED
     Route: 058
  10. BENADRYL [Concomitant]
     Active Substance: DIPHENHYDRAMINE HYDROCHLORIDE
     Indication: PRODUCT USED FOR UNKNOWN INDICATION
     Dosage: 1 DF, OTHER, 1 DOSE AS DIRECTED
     Route: 065
     Dates: start: 20130110
  11. CINRYZE [Suspect]
     Active Substance: HUMAN C1-ESTERASE INHIBITOR
     Indication: HEREDITARY ANGIOEDEMA
     Dosage: 1000 UNTIS, OTHER, EVERY 3 DAYS
     Route: 042
  12. LORTAB [Concomitant]
     Active Substance: ACETAMINOPHEN\HYDROCODONE BITARTRATE
     Indication: PRODUCT USED FOR UNKNOWN INDICATION
     Dosage: 1 DF, AS REQ^D, 10-500, 1 TAB AS NEEDED
     Route: 048
     Dates: start: 20131022
  13. LORAZEPAM. [Concomitant]
     Active Substance: LORAZEPAM
     Indication: PRODUCT USED FOR UNKNOWN INDICATION
     Dosage: 2 MG, OTHER, AS DIRECTED
     Route: 065
     Dates: start: 20130211
  14. ZOFRAN                             /00955301/ [Concomitant]
     Active Substance: ONDANSETRON HYDROCHLORIDE
     Indication: PRODUCT USED FOR UNKNOWN INDICATION
     Dosage: 4 MG, OTHER, AS DIRECTED
     Route: 065
     Dates: start: 20130211
  15. SODIUM CHLORIDE. [Concomitant]
     Active Substance: SODIUM CHLORIDE
     Indication: PRODUCT USED FOR UNKNOWN INDICATION
     Dosage: 0.9%, OTHER, AS DIRECTED
     Route: 042
     Dates: start: 20130212

REACTIONS (5)
  - Papule [Unknown]
  - Infusion site inflammation [Unknown]
  - Hereditary angioedema [Unknown]
  - Dermatitis contact [Unknown]
  - Infusion site pruritus [Unknown]

NARRATIVE: CASE EVENT DATE: 20150616
